FAERS Safety Report 18888460 (Version 3)
Quarter: 2021Q1

REPORT INFORMATION
  Report Type: Spontaneous
  Country: US (occurrence: US)
  Receive Date: 20210213
  Receipt Date: 20210302
  Transmission Date: 20210420
  Serious: No
  Sender: FDA-Public Use
  Company Number: US-GLAXOSMITHKLINE-US2021AMR036087

PATIENT
  Sex: Female

DRUGS (1)
  1. ZEJULA [Suspect]
     Active Substance: NIRAPARIB
     Indication: OVARIAN CANCER
     Dosage: 200 MG, QD
     Route: 048
     Dates: start: 20210202

REACTIONS (10)
  - Headache [Unknown]
  - Nasal congestion [Unknown]
  - SARS-CoV-2 test positive [Unknown]
  - Irritability [Unknown]
  - Nasopharyngitis [Unknown]
  - Nausea [Unknown]
  - Constipation [Not Recovered/Not Resolved]
  - Fatigue [Unknown]
  - Insomnia [Recovering/Resolving]
  - Product monitoring error [Unknown]
